FAERS Safety Report 14185946 (Version 1)
Quarter: 2017Q4

REPORT INFORMATION
  Report Type: Spontaneous
  Country: US (occurrence: US)
  Receive Date: 20171114
  Receipt Date: 20171114
  Transmission Date: 20180321
  Serious: No
  Sender: FDA-Public Use
  Company Number: US-GLAXOSMITHKLINE-US2017173243

PATIENT
  Sex: Female

DRUGS (2)
  1. TRIAMTERENE. [Concomitant]
     Active Substance: TRIAMTERENE
  2. BREO ELLIPTA [Suspect]
     Active Substance: FLUTICASONE FUROATE\VILANTEROL TRIFENATATE
     Indication: DYSPNOEA
     Dosage: UNK

REACTIONS (3)
  - Heart rate irregular [Unknown]
  - Heart rate increased [Not Recovered/Not Resolved]
  - Dyspnoea [Unknown]
